FAERS Safety Report 17606638 (Version 2)
Quarter: 2020Q2

REPORT INFORMATION
  Report Type: Report from Study
  Country: GB (occurrence: GB)
  Receive Date: 20200331
  Receipt Date: 20200412
  Transmission Date: 20200713
  Serious: Yes (Hospitalization, Other)
  Sender: FDA-Public Use
  Company Number: GB-SAMSUNG BIOEPIS-SB-2020-04614

PATIENT
  Age: 66 Year
  Sex: Male

DRUGS (1)
  1. IMRALDI [Suspect]
     Active Substance: ADALIMUMAB
     Indication: PSORIATIC ARTHROPATHY
     Route: 058

REACTIONS (4)
  - Intervertebral disc operation [Unknown]
  - Chronic obstructive pulmonary disease [Unknown]
  - Malaise [Not Recovered/Not Resolved]
  - Coronavirus infection [Unknown]
